FAERS Safety Report 17046123 (Version 4)
Quarter: 2020Q1

REPORT INFORMATION
  Report Type: Spontaneous
  Country: ES (occurrence: ES)
  Receive Date: 20191119
  Receipt Date: 20200117
  Transmission Date: 20200409
  Serious: Yes (Hospitalization, Disabling, Other)
  Sender: FDA-Public Use
  Company Number: ES-SA-2019SA314241

PATIENT
  Age: 52 Year
  Sex: Female

DRUGS (8)
  1. VALPROIC ACID. [Concomitant]
     Active Substance: VALPROIC ACID
     Dosage: 1000 MG, Q12H
     Route: 065
  2. LEMTRADA [Suspect]
     Active Substance: ALEMTUZUMAB
     Dosage: UNK
     Dates: start: 201711
  3. LACOSAMIDE. [Concomitant]
     Active Substance: LACOSAMIDE
     Dosage: 200 MG, Q12H
     Route: 065
  4. SOLIFENACIN [Concomitant]
     Active Substance: SOLIFENACIN
     Dosage: 10 MG, QD
     Route: 065
  5. CITALOPRAM [Concomitant]
     Active Substance: CITALOPRAM HYDROBROMIDE
     Dosage: 20 MG, QD
     Route: 065
  6. LEMTRADA [Suspect]
     Active Substance: ALEMTUZUMAB
     Indication: RELAPSING-REMITTING MULTIPLE SCLEROSIS
     Dosage: UNK UNK, UNK
     Route: 041
     Dates: start: 201902, end: 201902
  7. PERAMPANEL [Concomitant]
     Active Substance: PERAMPANEL
     Dosage: 6 MG, QD
     Route: 065
  8. BRIVARACETAM [Concomitant]
     Active Substance: BRIVARACETAM
     Dosage: 100 MG, Q12H

REACTIONS (16)
  - Stenotrophomonas infection [Unknown]
  - Candida infection [Not Recovered/Not Resolved]
  - Procalcitonin increased [Unknown]
  - Staphylococcal bacteraemia [Unknown]
  - Electroencephalogram abnormal [Recovered/Resolved]
  - Epilepsy [Unknown]
  - Pyrexia [Not Recovered/Not Resolved]
  - Walking disability [Unknown]
  - Acute respiratory failure [Not Recovered/Not Resolved]
  - Hypoxic-ischaemic encephalopathy [Unknown]
  - Multiple sclerosis [Unknown]
  - Septic shock [Recovering/Resolving]
  - Tracheobronchitis [Unknown]
  - White blood cell count increased [Recovered/Resolved]
  - Stupor [Unknown]
  - Lymphocyte count decreased [Recovered/Resolved]

NARRATIVE: CASE EVENT DATE: 2019
